FAERS Safety Report 15013322 (Version 1)
Quarter: 2018Q2

REPORT INFORMATION
  Report Type: Report from Study
  Country: CA (occurrence: CA)
  Receive Date: 20180614
  Receipt Date: 20180614
  Transmission Date: 20180711
  Serious: Yes (Hospitalization)
  Sender: FDA-Public Use
  Company Number: CA-BIOGEN-2018BI00542136

PATIENT
  Age: 55 Year
  Sex: Female

DRUGS (2)
  1. TYSABRI [Suspect]
     Active Substance: NATALIZUMAB
     Dosage: INFUSED OVER ONE HOUR
     Route: 042
     Dates: start: 20130708
  2. TYSABRI [Suspect]
     Active Substance: NATALIZUMAB
     Indication: MULTIPLE SCLEROSIS
     Dosage: INFUSED OVER ONE HOUR
     Route: 042
     Dates: start: 20090703

REACTIONS (10)
  - General physical condition abnormal [Unknown]
  - Fall [Recovered/Resolved]
  - Pallor [Unknown]
  - Contusion [Unknown]
  - Escherichia urinary tract infection [Recovered/Resolved]
  - Lethargy [Unknown]
  - Malaise [Not Recovered/Not Resolved]
  - Bradykinesia [Unknown]
  - Uhthoff^s phenomenon [Not Recovered/Not Resolved]
  - Fatigue [Unknown]

NARRATIVE: CASE EVENT DATE: 201802
